FAERS Safety Report 5130402-X (Version None)
Quarter: 2006Q4

REPORT INFORMATION
  Report Type: 
  Country: None (occurrence: None)
  Receive Date: 20061013
  Receipt Date: 20060928
  Transmission Date: 20070319
  Serious: Yes (Hospitalization)
  Sender: FDA-Public Use
  Company Number: US200608001436

PATIENT
  Age: 47 Year
  Sex: Male
  Weight: 83.9 kg

DRUGS (5)
  1. ZYPREXA [Suspect]
     Dosage: 10 MG, DAILY (1/D)
     Dates: start: 20020101, end: 20050101
  2. ARIPIPRAZOLE [Concomitant]
  3. TRIFLUOPERAZINE HCL [Concomitant]
  4. CITALOPRAM HYDROBROMIDE [Concomitant]
  5. LOPRESSOR [Concomitant]

REACTIONS (10)
  - BLOOD CHOLESTEROL ABNORMAL [None]
  - CARDIAC OPERATION [None]
  - DIABETES MELLITUS [None]
  - HYPERTENSION [None]
  - INSULIN RESISTANCE [None]
  - METABOLIC DISORDER [None]
  - MYOCARDIAL INFARCTION [None]
  - MYOCARDIAL ISCHAEMIA [None]
  - VISION BLURRED [None]
  - WEIGHT DECREASED [None]
